FAERS Safety Report 4914323-0 (Version None)
Quarter: 2006Q1

REPORT INFORMATION
  Report Type: 
  Country: None (occurrence: None)
  Receive Date: 20060213
  Receipt Date: 20060127
  Transmission Date: 20060701
  Serious: Yes (Hospitalization)
  Sender: FDA-Public Use
  Company Number: TRP_0697_2006

PATIENT
  Age: 58 Year
  Sex: Female

DRUGS (5)
  1. RIBASPHERE [Suspect]
     Indication: HEPATITIS C
     Dosage: DF PO
     Route: 048
     Dates: start: 20051216
  2. PEG-INTRON/PEGINTERFERON ALFA-2B/SCHERING PLOUGH/REDIPEN [Suspect]
     Indication: HEPATITIS C
     Dosage: DF SC
     Route: 058
     Dates: start: 20051216
  3. DOCUSATE SODIUM [Concomitant]
  4. INDERAL [Concomitant]
  5. PROZAC [Concomitant]

REACTIONS (1)
  - LUNG DISORDER [None]
